FAERS Safety Report 26028515 (Version 1)
Quarter: 2025Q4

REPORT INFORMATION
  Report Type: Spontaneous
  Country: EU (occurrence: EU)
  Receive Date: 20251111
  Receipt Date: 20251111
  Transmission Date: 20260117
  Serious: Yes (Hospitalization)
  Sender: BRISTOL-MYERS SQUIBB COMPANY
  Company Number: EU-BRISTOL-MYERS SQUIBB COMPANY-2025-151095

PATIENT
  Age: 82 Year

DRUGS (2)
  1. ELIQUIS [Suspect]
     Active Substance: APIXABAN
     Indication: Product used for unknown indication
  2. ANDEXANET ALFA [Concomitant]
     Active Substance: ANDEXANET ALFA
     Indication: Product used for unknown indication
     Dosage: 400 MG AND 480 MG OVER 2 HOURS

REACTIONS (3)
  - Contusion [Unknown]
  - Fall [Unknown]
  - Head injury [Unknown]
